FAERS Safety Report 5057669-0 (Version None)
Quarter: 2006Q3

REPORT INFORMATION
  Report Type: 
  Country: None (occurrence: None)
  Receive Date: 20060721
  Receipt Date: 20060112
  Transmission Date: 20061208
  Serious: No
  Sender: FDA-Public Use
  Company Number: US-GLAXOSMITHKLINE-A0589055A

PATIENT
  Age: 70 Year
  Sex: Male

DRUGS (4)
  1. AVANDIA [Suspect]
     Dosage: 8MG PER DAY
     Route: 048
  2. HYDROCHLOROTHIAZIDE [Concomitant]
  3. GLUCOVANCE [Concomitant]
  4. ATENOLOL [Concomitant]

REACTIONS (2)
  - EYE PAIN [None]
  - VISION BLURRED [None]
